FAERS Safety Report 20997387 (Version 1)
Quarter: 2022Q2

REPORT INFORMATION
  Report Type: Spontaneous
  Country: US (occurrence: US)
  Receive Date: 20220623
  Receipt Date: 20220623
  Transmission Date: 20220721
  Serious: No
  Sender: FDA-Public Use
  Company Number: US-BAUSCH-BL-2022-015282

PATIENT
  Sex: Female

DRUGS (2)
  1. ATIVAN [Suspect]
     Active Substance: LORAZEPAM
     Indication: Anxiety
     Route: 048
  2. ATIVAN [Suspect]
     Active Substance: LORAZEPAM
     Indication: Sleep disorder

REACTIONS (5)
  - Therapeutic product effect decreased [Unknown]
  - Intentional product use issue [Unknown]
  - Product quality issue [Unknown]
  - Product taste abnormal [Unknown]
  - Product physical consistency issue [Unknown]
